FAERS Safety Report 5612297-0 (Version None)
Quarter: 2008Q1

REPORT INFORMATION
  Report Type: 
  Country: None (occurrence: None)
  Receive Date: 20080201
  Receipt Date: 20080201
  Transmission Date: 20080703
  Serious: No
  Sender: FDA-Public Use
  Company Number: None

PATIENT
  Sex: Female

DRUGS (1)
  1. DURAGESIC-25 [Suspect]
     Indication: CHEST PAIN
     Dosage: 25MCG Q72HRS TRANSDERMAL
     Route: 062
     Dates: start: 20070424, end: 20070502

REACTIONS (5)
  - DIZZINESS [None]
  - DRUG EFFECT DECREASED [None]
  - EUPHORIC MOOD [None]
  - INADEQUATE ANALGESIA [None]
  - PHARMACEUTICAL PRODUCT COMPLAINT [None]
